FAERS Safety Report 12187574 (Version 1)
Quarter: 2016Q1

REPORT INFORMATION
  Report Type: Spontaneous
  Country: JP (occurrence: JP)
  Receive Date: 20160317
  Receipt Date: 20160317
  Transmission Date: 20160526
  Serious: Yes (Other)
  Sender: FDA-Public Use
  Company Number: JP-AMGEN-JPNSP2016032561

PATIENT
  Sex: Female
  Weight: 31 kg

DRUGS (1)
  1. ENBREL [Suspect]
     Active Substance: ETANERCEPT
     Indication: PRODUCT USED FOR UNKNOWN INDICATION
     Dosage: 50 MG, WEEKLY
     Route: 058

REACTIONS (7)
  - Pneumonia mycoplasmal [Unknown]
  - Muscle rupture [Unknown]
  - Pyrexia [Unknown]
  - Injection site haemorrhage [Unknown]
  - Cataract [Unknown]
  - Weight decreased [Unknown]
  - Injection site erythema [Unknown]
